FAERS Safety Report 12093948 (Version 1)
Quarter: 2016Q1

REPORT INFORMATION
  Report Type: Spontaneous
  Country: US (occurrence: US)
  Receive Date: 20160219
  Receipt Date: 20160219
  Transmission Date: 20160526
  Serious: No
  Sender: FDA-Public Use
  Company Number: US-BAYER-2016-033511

PATIENT
  Age: 81 Year
  Sex: Female
  Weight: 85.26 kg

DRUGS (7)
  1. GERITOL [VIT C,B5,FE+ SULF,B3,B6,B2,B1 MONONITR] [Concomitant]
  2. MIRALAX [Suspect]
     Active Substance: POLYETHYLENE GLYCOL 3350
  3. TYLENOL [DIPHENHYDRAMINE HYDROCHLORIDE,PARACETAMOL] [Concomitant]
     Active Substance: ACETAMINOPHEN\DIPHENHYDRAMINE HYDROCHLORIDE
  4. TRACLEER [Concomitant]
     Active Substance: BOSENTAN
  5. METAMUCIL [Concomitant]
     Active Substance: PLANTAGO SEED
  6. PREVACID [Concomitant]
     Active Substance: LANSOPRAZOLE
  7. COUMADIN [Concomitant]
     Active Substance: WARFARIN SODIUM

REACTIONS (1)
  - Circumstance or information capable of leading to medication error [None]
